FAERS Safety Report 21632361 (Version 1)
Quarter: 2022Q4

REPORT INFORMATION
  Report Type: Spontaneous
  Country: US (occurrence: US)
  Receive Date: 20221123
  Receipt Date: 20221123
  Transmission Date: 20230113
  Serious: Yes (Other)
  Sender: FDA-Public Use
  Company Number: US-SA-SAC20221118000548

PATIENT
  Age: 38 Year
  Sex: Male
  Weight: 90 kg

DRUGS (24)
  1. FABRAZYME [Suspect]
     Active Substance: AGALSIDASE BETA
     Indication: Fabry^s disease
     Dosage: 105 MG, QOW
     Route: 042
     Dates: start: 20200528
  2. DIPHENHYDRAMINE HYDROCHLOROIDE [Concomitant]
  3. HEPARIN [Concomitant]
     Active Substance: HEPARIN SODIUM
  4. VITAMIN D NOS [Concomitant]
     Active Substance: VITAMIN D NOS
  5. TRILEPTAL [Concomitant]
     Active Substance: OXCARBAZEPINE
  6. EPINEPHRINE [Concomitant]
     Active Substance: EPINEPHRINE
  7. TOPAMAX [Concomitant]
     Active Substance: TOPIRAMATE
  8. TYLENOL COLD HEAD CONGESTION SEVERE [DEXTROMETHORPHAN HYDROBROMIDE;GUA [Concomitant]
  9. ACETAMINOPHEN [Concomitant]
     Active Substance: ACETAMINOPHEN
  10. STERILE WATER [Concomitant]
     Active Substance: WATER
  11. SALINE KARE [Concomitant]
  12. NEXIUM I.V. [Concomitant]
     Active Substance: ESOMEPRAZOLE SODIUM
  13. PRAVASTATIN SODIUM [Concomitant]
     Active Substance: PRAVASTATIN SODIUM
  14. SOLU-MEDROL [Concomitant]
     Active Substance: METHYLPREDNISOLONE SODIUM SUCCINATE
  15. LEXAPRO [Concomitant]
     Active Substance: ESCITALOPRAM OXALATE
  16. BENADRYL [Concomitant]
     Active Substance: DIPHENHYDRAMINE HYDROCHLORIDE
  17. FOSAMAX [Concomitant]
     Active Substance: ALENDRONATE SODIUM
  18. FOLIC ACID [Concomitant]
     Active Substance: FOLIC ACID
  19. CYMBALTA [Concomitant]
     Active Substance: DULOXETINE HYDROCHLORIDE
  20. SODIUM CHLORIDE [Concomitant]
     Active Substance: SODIUM CHLORIDE
  21. VITAMINS NOS [Concomitant]
     Active Substance: VITAMINS
     Dosage: UNK UNK, QD
  22. TYLENOL EXTRA STRENGTH [Concomitant]
     Active Substance: ACETAMINOPHEN
  23. SODIUM CHLORIDE [Concomitant]
     Active Substance: SODIUM CHLORIDE
  24. VITAMIN B12 [Concomitant]
     Active Substance: CYANOCOBALAMIN

REACTIONS (1)
  - Pneumonia [Unknown]
